FAERS Safety Report 18579022 (Version 1)
Quarter: 2020Q4

REPORT INFORMATION
  Report Type: Spontaneous
  Country: US (occurrence: US)
  Receive Date: 20201128
  Receipt Date: 20201128
  Transmission Date: 20210114
  Serious: No
  Sender: FDA-Public Use
  Company Number: None

PATIENT

DRUGS (5)
  1. VITAMIN C [Suspect]
     Active Substance: ASCORBIC ACID
  2. DEXTROMETHORPHAN [Suspect]
     Active Substance: DEXTROMETHORPHAN
  3. VITAMIN C [Suspect]
     Active Substance: ASCORBIC ACID
  4. IRON [Suspect]
     Active Substance: IRON
  5. CITRIC ACID [Suspect]
     Active Substance: CITRIC ACID MONOHYDRATE
     Indication: COVID-19

REACTIONS (3)
  - Anxiety [None]
  - Dizziness [None]
  - Psychotic disorder [None]
